FAERS Safety Report 8589624-8 (Version None)
Quarter: 2012Q3

REPORT INFORMATION
  Report Type: 
  Country: None (occurrence: None)
  Receive Date: 20120813
  Receipt Date: 20120806
  Transmission Date: 20120928
  Serious: Yes (Other)
  Sender: FDA-Public Use
  Company Number: BR-PFIZER INC-2012190846

PATIENT
  Age: 52 Year
  Sex: Female

DRUGS (2)
  1. LATANOPROST [Suspect]
     Indication: GLAUCOMA
     Dosage: UNK
     Route: 047
     Dates: start: 20100201
  2. AZORGA [Concomitant]
     Indication: GLAUCOMA
     Dosage: UNK
     Dates: start: 20100101

REACTIONS (2)
  - TOOTH DISORDER [None]
  - MALAISE [None]
